FAERS Safety Report 5597520-3 (Version None)
Quarter: 2008Q1

REPORT INFORMATION
  Report Type: 
  Country: None (occurrence: None)
  Receive Date: 20080116
  Receipt Date: 20080104
  Transmission Date: 20080703
  Serious: Yes (Other)
  Sender: FDA-Public Use
  Company Number: DSU-2007-00957

PATIENT
  Age: 52 Year
  Sex: Female

DRUGS (1)
  1. BENICAR [Suspect]
     Indication: BLOOD PRESSURE
     Dosage: PER ORAL
     Route: 048

REACTIONS (4)
  - BLOOD GLUCOSE INCREASED [None]
  - CHEST PAIN [None]
  - UNEVALUABLE EVENT [None]
  - VISUAL ACUITY REDUCED [None]
